FAERS Safety Report 4501747-9 (Version None)
Quarter: 2004Q4

REPORT INFORMATION
  Report Type: 
  Country: None (occurrence: None)
  Receive Date: 20041115
  Receipt Date: 20041115
  Transmission Date: 20050328
  Serious: No
  Sender: FDA-Public Use
  Company Number: None

PATIENT
  Age: 44 Year
  Sex: Male
  Weight: 136.0791 kg

DRUGS (3)
  1. SEROQUEL [Suspect]
     Dates: start: 20020401, end: 20040409
  2. CELEXA [Concomitant]
  3. XANAX [Concomitant]

REACTIONS (1)
  - DIABETES MELLITUS [None]
